FAERS Safety Report 17683407 (Version 3)
Quarter: 2020Q3

REPORT INFORMATION
  Report Type: Spontaneous
  Country: US (occurrence: US)
  Receive Date: 20200420
  Receipt Date: 20200908
  Transmission Date: 20201102
  Serious: Yes (Other)
  Sender: FDA-Public Use
  Company Number: US-GLAXOSMITHKLINE-US2020AMR066896

PATIENT
  Age: 46 Year
  Sex: Female

DRUGS (1)
  1. BENLYSTA [Suspect]
     Active Substance: BELIMUMAB
     Indication: SYSTEMIC LUPUS ERYTHEMATOSUS
     Dosage: UNK
     Route: 042
     Dates: start: 201610

REACTIONS (8)
  - Suicidal behaviour [Unknown]
  - Headache [Unknown]
  - Spinal fusion surgery [Recovering/Resolving]
  - Pain [Not Recovered/Not Resolved]
  - Product dose omission issue [Not Recovered/Not Resolved]
  - Post procedural complication [Unknown]
  - Asthenia [Unknown]
  - Vein collapse [Unknown]

NARRATIVE: CASE EVENT DATE: 202003
